FAERS Safety Report 20462196 (Version 7)
Quarter: 2022Q2

REPORT INFORMATION
  Report Type: Report from Study
  Country: BR (occurrence: BR)
  Receive Date: 20220211
  Receipt Date: 20220531
  Transmission Date: 20220721
  Serious: Yes (Other)
  Sender: FDA-Public Use
  Company Number: BR-NOVARTISPH-NVSC2022BR027975

PATIENT
  Sex: Male

DRUGS (15)
  1. COSENTYX [Suspect]
     Active Substance: SECUKINUMAB
     Indication: Ankylosing spondylitis
     Dosage: UNK
     Route: 065
  2. COSENTYX [Suspect]
     Active Substance: SECUKINUMAB
     Indication: Psoriatic arthropathy
     Dosage: 2 DOSAGE FORM (2 INJECTIONS)
     Route: 065
  3. COSENTYX [Suspect]
     Active Substance: SECUKINUMAB
     Dosage: UNK (150 MG/ML)
     Route: 065
  4. COSENTYX [Suspect]
     Active Substance: SECUKINUMAB
     Dosage: UNK
     Route: 065
     Dates: start: 20220420
  5. LOSARTAN [Suspect]
     Active Substance: LOSARTAN
     Indication: Product used for unknown indication
     Dosage: 50 MG, QD
     Route: 065
  6. ATENOLOL [Suspect]
     Active Substance: ATENOLOL
     Indication: Blood pressure increased
     Dosage: 50 MG, QD
     Route: 065
  7. METHOTREXATE [Suspect]
     Active Substance: METHOTREXATE
     Indication: Product used for unknown indication
     Dosage: 2.5 MG (6 PER WEEK)
     Route: 065
  8. PREGABALIN [Suspect]
     Active Substance: PREGABALIN
     Indication: Pain
     Dosage: 75 MG, BID (MORNING AND NIGHT)
     Route: 065
  9. PREGABALIN [Suspect]
     Active Substance: PREGABALIN
     Dosage: 2 DOSAGE FORM, (TABLET) Q12H
     Route: 065
  10. PREGABALIN [Suspect]
     Active Substance: PREGABALIN
     Dosage: 75 MG (2 BOXES)
     Route: 065
  11. PREGABALIN [Suspect]
     Active Substance: PREGABALIN
     Dosage: UNK (4 TABLETS)
     Route: 065
  12. CELECOXIB [Suspect]
     Active Substance: CELECOXIB
     Indication: Product used for unknown indication
     Dosage: 1 DOSAGE FORM, (TABLET) Q12H
     Route: 065
  13. CELECOXIB [Suspect]
     Active Substance: CELECOXIB
     Dosage: 200 MG ( 2 BOXES)
     Route: 065
  14. CELECOXIB [Suspect]
     Active Substance: CELECOXIB
     Dosage: 200 MG (2 TABLETS)
     Route: 065
  15. HYDROCHLOROTHIAZIDE [Concomitant]
     Active Substance: HYDROCHLOROTHIAZIDE
     Indication: Product used for unknown indication
     Dosage: 1 DOSAGE FORM, QD
     Route: 065

REACTIONS (37)
  - Psoriatic arthropathy [Not Recovered/Not Resolved]
  - Arthritis [Unknown]
  - Ankylosing spondylitis [Not Recovered/Not Resolved]
  - Choking [Not Recovered/Not Resolved]
  - Femur fracture [Unknown]
  - Decreased immune responsiveness [Unknown]
  - Peripheral swelling [Not Recovered/Not Resolved]
  - Cardiac disorder [Unknown]
  - Gait disturbance [Unknown]
  - Spinal pain [Not Recovered/Not Resolved]
  - Back pain [Not Recovered/Not Resolved]
  - Arthralgia [Not Recovered/Not Resolved]
  - Neck pain [Not Recovered/Not Resolved]
  - COVID-19 [Recovered/Resolved with Sequelae]
  - Pain [Not Recovered/Not Resolved]
  - Cough [Unknown]
  - Fatigue [Unknown]
  - Wheezing [Not Recovered/Not Resolved]
  - Pain in extremity [Not Recovered/Not Resolved]
  - Depression [Not Recovered/Not Resolved]
  - Oropharyngeal discomfort [Not Recovered/Not Resolved]
  - Bone pain [Not Recovered/Not Resolved]
  - Oral pain [Unknown]
  - Lip injury [Unknown]
  - Gingival injury [Unknown]
  - Pelvic pain [Not Recovered/Not Resolved]
  - Burning sensation [Unknown]
  - Erythema [Recovering/Resolving]
  - Skin wound [Recovering/Resolving]
  - Skin haemorrhage [Unknown]
  - Skin swelling [Unknown]
  - Weight decreased [Unknown]
  - Spinal disorder [Unknown]
  - Intervertebral disc protrusion [Unknown]
  - Fractured coccyx [Not Recovered/Not Resolved]
  - Dandruff [Not Recovered/Not Resolved]
  - Movement disorder [Unknown]

NARRATIVE: CASE EVENT DATE: 19970101
